FAERS Safety Report 7833186-7 (Version None)
Quarter: 2011Q4

REPORT INFORMATION
  Report Type: 
  Country: None (occurrence: None)
  Receive Date: 20111024
  Receipt Date: 20111013
  Transmission Date: 20120403
  Serious: Yes (Disabling)
  Sender: FDA-Public Use
  Company Number: PA-US-EMD SERONO, INC.-7089781

PATIENT
  Sex: Female

DRUGS (4)
  1. PREDNISONE [Concomitant]
  2. AZATHIOPRINE [Concomitant]
  3. CARBAMAZEPINE [Concomitant]
  4. REBIF [Suspect]
     Route: 058
     Dates: start: 20110620, end: 20110705

REACTIONS (1)
  - AMENORRHOEA [None]
